FAERS Safety Report 9170912 (Version 2)
Quarter: 2013Q1

REPORT INFORMATION
  Report Type: Spontaneous
  Country: BE (occurrence: None)
  Receive Date: 20130311
  Receipt Date: 20130318
  Transmission Date: 20140127
  Serious: Yes (Hospitalization)
  Sender: FDA-Public Use
  Company Number: ACO_34634_2013

PATIENT
  Age: 69 Year
  Sex: Female

DRUGS (8)
  1. FAMPRIDINE-SR [Suspect]
     Indication: MULTIPLE SCLEROSIS
     Route: 048
     Dates: start: 20120615
  2. AMANTADINE (AMANTADINE) [Concomitant]
  3. ASAFLOW (ACETYLSALICYLIC ACID) [Concomitant]
  4. LIORESAL (BACLOFEN) [Concomitant]
  5. LIPANTYLY (FENOFIBRATE) [Concomitant]
  6. SIPRALEXA (ESCITALOPRAM) [Concomitant]
  7. TRILEPTAL (OXCARBAZEPINE) [Concomitant]
  8. AMIOR (AMIODIPINE BESILATE) [Concomitant]

REACTIONS (8)
  - Syncope [None]
  - Mental impairment [None]
  - Neurodegenerative disorder [None]
  - Spinal osteoarthritis [None]
  - Fear [None]
  - Hypertension [None]
  - Fatigue [None]
  - Muscle spasms [None]
